FAERS Safety Report 15213126 (Version 1)
Quarter: 2018Q3

REPORT INFORMATION
  Report Type: Other
  Country: GB (occurrence: GB)
  Receive Date: 20180730
  Receipt Date: 20180730
  Transmission Date: 20181010
  Serious: Yes (Other)
  Sender: FDA-Public Use
  Company Number: GB-LUPIN PHARMACEUTICALS INC.-2018-05274

PATIENT

DRUGS (4)
  1. LANSOPRAZOLE. [Suspect]
     Active Substance: LANSOPRAZOLE
     Indication: ABDOMINAL PAIN UPPER
     Dosage: 30 MG, QD
     Route: 065
     Dates: start: 20160714, end: 20160717
  2. BRUFEN                             /00109201/ [Concomitant]
     Active Substance: IBUPROFEN
     Indication: PRODUCT USED FOR UNKNOWN INDICATION
     Dosage: UNK
     Route: 065
  3. OMEPRAZOLE. [Suspect]
     Active Substance: OMEPRAZOLE
     Indication: PRODUCT USED FOR UNKNOWN INDICATION
     Dosage: UNK
     Route: 065
  4. COCODAMOL [Suspect]
     Active Substance: ACETAMINOPHEN\CODEINE PHOSPHATE
     Indication: ABDOMINAL PAIN UPPER
     Dosage: 1 DF, UNK, (30/500. 1?2 FOUR TIMES A DAY)
     Route: 065
     Dates: start: 20160714

REACTIONS (7)
  - Pruritus [Unknown]
  - Periorbital oedema [Not Recovered/Not Resolved]
  - Constipation [Unknown]
  - Pain [Unknown]
  - Erythema [Unknown]
  - Urticaria [Unknown]
  - Inflammation [Unknown]

NARRATIVE: CASE EVENT DATE: 201607
